FAERS Safety Report 13388197 (Version 1)
Quarter: 2017Q1

REPORT INFORMATION
  Report Type: Spontaneous
  Country: US (occurrence: US)
  Receive Date: 20170330
  Receipt Date: 20170330
  Transmission Date: 20170429
  Serious: Yes (Other)
  Sender: FDA-Public Use
  Company Number: US-ASTELLAS-2017US011801

PATIENT
  Age: 81 Year
  Sex: Male

DRUGS (1)
  1. XTANDI [Suspect]
     Active Substance: ENZALUTAMIDE
     Indication: PROSTATE CANCER METASTATIC
     Route: 065
     Dates: start: 201701, end: 20170302

REACTIONS (16)
  - Atrial fibrillation [Unknown]
  - Myalgia [Unknown]
  - Hot flush [Unknown]
  - Arthralgia [Unknown]
  - Dyspnoea [Unknown]
  - Nausea [Unknown]
  - Fatigue [Unknown]
  - Asthenia [Unknown]
  - Back pain [Unknown]
  - Disturbance in attention [Unknown]
  - Fall [Unknown]
  - Weight decreased [Unknown]
  - Bone pain [Unknown]
  - Decreased appetite [Unknown]
  - Constipation [Unknown]
  - Prostatic specific antigen increased [Unknown]

NARRATIVE: CASE EVENT DATE: 20170317
